FAERS Safety Report 10184112 (Version 1)
Quarter: 2014Q2

REPORT INFORMATION
  Report Type: Spontaneous
  Country: US (occurrence: US)
  Receive Date: 20140520
  Receipt Date: 20140520
  Transmission Date: 20141212
  Serious: No
  Sender: FDA-Public Use
  Company Number: US-ASTRAZENECA-2013SE75729

PATIENT
  Sex: Male

DRUGS (2)
  1. ENTOCORT EC [Suspect]
     Indication: CROHN^S DISEASE
     Route: 048
     Dates: start: 20130901
  2. PREDNISONE [Concomitant]
     Indication: CROHN^S DISEASE
     Dosage: UNKNOWN
     Dates: start: 201302

REACTIONS (4)
  - Fluid retention [Unknown]
  - Oral herpes [Unknown]
  - Swelling [Unknown]
  - Intentional product misuse [Unknown]
